FAERS Safety Report 16384212 (Version 1)
Quarter: 2019Q2

REPORT INFORMATION
  Report Type: Report from Study
  Country: GB (occurrence: GB)
  Receive Date: 20190603
  Receipt Date: 20190603
  Transmission Date: 20190711
  Serious: Yes (Death)
  Sender: FDA-Public Use
  Company Number: GB-MYLANLABS-2019M1051587

PATIENT
  Age: 58 Year
  Sex: Male

DRUGS (1)
  1. EPINEPHRINE. [Suspect]
     Active Substance: EPINEPHRINE
     Indication: CARDIAC ARREST
     Dosage: TEN BOLUS DOSES OF 1MG ADMINISTERED AT INTERVALS OF 3-5 MINUTES
     Route: 050

REACTIONS (1)
  - Drug ineffective [Fatal]
